FAERS Safety Report 6669474-X (Version None)
Quarter: 2010Q2

REPORT INFORMATION
  Report Type: 
  Country: None (occurrence: None)
  Receive Date: 20100406
  Receipt Date: 20100326
  Transmission Date: 20101027
  Serious: Yes (Hospitalization, Other)
  Sender: FDA-Public Use
  Company Number: PHHY2010JP11589

PATIENT
  Sex: Male
  Weight: 63 kg

DRUGS (15)
  1. VOLTAREN [Suspect]
     Indication: PROCTALGIA
     Dosage: 100 MG, UNK
     Route: 054
     Dates: start: 20100224
  2. MAGCOROL [Concomitant]
     Dosage: 0.5 DF, UNK
     Route: 048
     Dates: start: 20100223
  3. LOXONIN [Concomitant]
     Dosage: 180 MG, UNK
     Route: 048
     Dates: start: 20100224
  4. HEMONASE [Concomitant]
     Dosage: 1 DF, UNK
     Dates: start: 20100224
  5. DASEN [Concomitant]
     Dosage: 30 MG, UNK
     Route: 048
     Dates: start: 20100224
  6. MUCOSTA [Concomitant]
     Dosage: 3 DF, UNK
     Route: 048
     Dates: start: 20100224
  7. ACTIT [Concomitant]
     Dosage: UNK
     Dates: start: 20100224
  8. PHYSIO 140 [Concomitant]
  9. AMINO ACIDS/CARBOHYDRATES/MINERALS/VITAMINS, [Concomitant]
     Dosage: UNK
     Dates: start: 20100224
  10. TRANSAMIN [Concomitant]
  11. ADONA [Concomitant]
     Dosage: UNK
     Dates: start: 20100224
  12. PANSPORIN [Concomitant]
     Dosage: UNK
     Dates: start: 20100224
  13. XYLOCAINE [Concomitant]
     Indication: ANAESTHESIA
     Dosage: UNK
     Dates: start: 20100224
  14. BOSMIN [Concomitant]
     Dosage: UNK
     Dates: start: 20100224
  15. SOSEGON [Concomitant]
     Dosage: UNK
     Route: 030
     Dates: start: 20100224

REACTIONS (9)
  - ANORECTAL OPERATION [None]
  - COLD SWEAT [None]
  - DYSURIA [None]
  - HAEMODIALYSIS [None]
  - MALAISE [None]
  - NAUSEA [None]
  - PAIN [None]
  - RENAL FAILURE [None]
  - VOMITING [None]
